FAERS Safety Report 16608644 (Version 2)
Quarter: 2019Q3

REPORT INFORMATION
  Report Type: Spontaneous
  Country: US (occurrence: US)
  Receive Date: 20190722
  Receipt Date: 20190829
  Transmission Date: 20191004
  Serious: No
  Sender: FDA-Public Use
  Company Number: US-PFIZER INC-2019311331

PATIENT
  Age: 51 Year
  Sex: Female
  Weight: 81.63 kg

DRUGS (7)
  1. AMITRIPTYLINE [Concomitant]
     Active Substance: AMITRIPTYLINE
  2. PROZAC [Concomitant]
     Active Substance: FLUOXETINE HYDROCHLORIDE
  3. LYRICA [Suspect]
     Active Substance: PREGABALIN
     Indication: FIBROMYALGIA
     Dosage: UNK
  4. TRAMADOL. [Concomitant]
     Active Substance: TRAMADOL
  5. FISH OIL [Concomitant]
     Active Substance: FISH OIL
  6. FLEXERIL [CEFIXIME] [Concomitant]
     Active Substance: CEFIXIME
  7. VISTARIL [HYDROXYZINE EMBONATE] [Concomitant]

REACTIONS (2)
  - Abdominal discomfort [Recovered/Resolved]
  - Vomiting [Unknown]
